FAERS Safety Report 23036715 (Version 1)
Quarter: 2023Q4

REPORT INFORMATION
  Report Type: Other
  Country: DE (occurrence: DE)
  Receive Date: 20231006
  Receipt Date: 20231006
  Transmission Date: 20240110
  Serious: Yes (Life-Threatening, Hospitalization)
  Sender: FDA-Public Use
  Company Number: DE-PFIZER INC-PV202300158366

PATIENT
  Sex: Male

DRUGS (1)
  1. RITUXIMAB [Suspect]
     Active Substance: RITUXIMAB
     Indication: Glomerulonephritis minimal lesion
     Dosage: 11 CYCLES, CYCLIC
     Route: 041

REACTIONS (2)
  - Acute respiratory distress syndrome [Unknown]
  - COVID-19 [Unknown]
